FAERS Safety Report 4918626-5 (Version None)
Quarter: 2006Q1

REPORT INFORMATION
  Report Type: 
  Country: None (occurrence: None)
  Receive Date: 20060222
  Receipt Date: 20060215
  Transmission Date: 20060701
  Serious: Yes (Hospitalization, Other)
  Sender: FDA-Public Use
  Company Number: US-BRISTOL-MYERS SQUIBB COMPANY-13284625

PATIENT
  Age: 76 Year
  Sex: Female
  Weight: 62 kg

DRUGS (12)
  1. ERBITUX [Suspect]
     Indication: NEOPLASM MALIGNANT
     Route: 042
     Dates: start: 20060104, end: 20060104
  2. BENADRYL [Concomitant]
     Indication: PREMEDICATION
     Route: 042
     Dates: start: 20060104, end: 20060104
  3. PROCRIT [Concomitant]
  4. FOSAMAX [Concomitant]
  5. ZOCOR [Concomitant]
  6. DETROL [Concomitant]
  7. LISINOPRIL [Concomitant]
  8. NEXIUM [Concomitant]
  9. MEGACE [Concomitant]
  10. COUMADIN [Concomitant]
  11. ZOLOFT [Concomitant]
  12. AMBIEN [Concomitant]

REACTIONS (2)
  - HIP FRACTURE [None]
  - LOSS OF CONSCIOUSNESS [None]
